FAERS Safety Report 5895009-5 (Version None)
Quarter: 2008Q3

REPORT INFORMATION
  Report Type: 
  Country: None (occurrence: None)
  Receive Date: 20080924
  Receipt Date: 20080915
  Transmission Date: 20090109
  Serious: Yes (Other)
  Sender: FDA-Public Use
  Company Number: US-ROCHE-586400

PATIENT
  Sex: Male
  Weight: 79.4 kg

DRUGS (1)
  1. CAPECITABINE [Suspect]
     Indication: RENAL CANCER METASTATIC
     Route: 065

REACTIONS (1)
  - PULMONARY OEDEMA [None]
